FAERS Safety Report 11621986 (Version 1)
Quarter: 2015Q4

REPORT INFORMATION
  Report Type: Spontaneous
  Country: US (occurrence: US)
  Receive Date: 20151013
  Receipt Date: 20151013
  Transmission Date: 20160304
  Serious: No
  Sender: FDA-Public Use
  Company Number: US-JNJFOC-20150913169

PATIENT
  Age: 62 Year
  Sex: Female
  Weight: 82.56 kg

DRUGS (4)
  1. VISINE [Suspect]
     Active Substance: TETRAHYDROZOLINE HYDROCHLORIDE
     Indication: REMOVAL OF FOREIGN BODY FROM EYE
     Dosage: AS NEEDED ONCE OR TWICE PER YEAR
     Route: 047
  2. TOCOPHEROL [Concomitant]
     Active Substance: TOCOPHEROL
     Indication: FIBROCYSTIC BREAST DISEASE
     Dosage: 2 TABS PER DAY
     Route: 065
  3. VITAMIN C [Concomitant]
     Active Substance: ASCORBIC ACID
     Indication: ANTIVIRAL PROPHYLAXIS
     Route: 065
  4. MULTIVITAMINS [Concomitant]
     Active Substance: VITAMINS
     Indication: ROUTINE HEALTH MAINTENANCE
     Route: 065

REACTIONS (2)
  - Eye irritation [Recovered/Resolved]
  - Product use issue [Recovered/Resolved]
